FAERS Safety Report 8472677-5 (Version None)
Quarter: 2012Q2

REPORT INFORMATION
  Report Type: 
  Country: None (occurrence: None)
  Receive Date: 20120627
  Receipt Date: 20120615
  Transmission Date: 20120825
  Serious: Yes (Hospitalization)
  Sender: FDA-Public Use
  Company Number: JP-VERTEX PHARMACEUTICALS INC.-AE-2012-008465

PATIENT
  Age: 52 Year
  Sex: Male

DRUGS (7)
  1. FAMOTIDINE [Concomitant]
     Route: 048
     Dates: start: 20120222, end: 20120401
  2. REBETOL [Concomitant]
     Indication: HEPATITIS C
     Route: 048
     Dates: start: 20120222, end: 20120228
  3. TELAVIC (TELAPREVIR) [Suspect]
     Indication: HEPATITIS C
     Route: 048
     Dates: start: 20120222, end: 20120508
  4. PEGINTERFERON ALFA-2B [Concomitant]
     Indication: HEPATITIS C
     Route: 051
     Dates: start: 20120222, end: 20120501
  5. REBETOL [Concomitant]
     Route: 048
     Dates: start: 20120229, end: 20120403
  6. REBETOL [Concomitant]
     Route: 048
     Dates: start: 20120404, end: 20120508
  7. LOXOPROFEN [Concomitant]
     Route: 048
     Dates: start: 20120222, end: 20120401

REACTIONS (1)
  - PNEUMONIA [None]
